FAERS Safety Report 22303713 (Version 2)
Quarter: 2023Q2

REPORT INFORMATION
  Report Type: Spontaneous
  Country: CH (occurrence: CH)
  Receive Date: 20230510
  Receipt Date: 20230522
  Transmission Date: 20230722
  Serious: Yes (Hospitalization, Other)
  Sender: FDA-Public Use
  Company Number: CH-PFIZER INC-PV202300081216

PATIENT
  Age: 80 Year
  Sex: Male
  Weight: 94 kg

DRUGS (3)
  1. TALAZOPARIB [Suspect]
     Active Substance: TALAZOPARIB
     Indication: Prostate cancer
     Dosage: 0.25 MG, 2X/DAY
     Route: 048
     Dates: start: 20230417
  2. XTANDI [Concomitant]
     Active Substance: ENZALUTAMIDE
     Indication: Prostate cancer metastatic
     Dosage: 40 MG, 1X/DAY
     Route: 048
     Dates: start: 20230309
  3. LEUPROLIDE ACETATE [Concomitant]
     Active Substance: LEUPROLIDE ACETATE
     Indication: Prostate cancer metastatic
     Dosage: 11.25 MG
     Route: 058
     Dates: start: 20210727

REACTIONS (4)
  - Fractured sacrum [Recovered/Resolved]
  - Pain [Recovered/Resolved]
  - Thrombocytopenia [Unknown]
  - Off label use [Unknown]

NARRATIVE: CASE EVENT DATE: 20230424
